FAERS Safety Report 5280878-2 (Version None)
Quarter: 2007Q1

REPORT INFORMATION
  Report Type: 
  Country: None (occurrence: None)
  Receive Date: 20070329
  Receipt Date: 20070322
  Transmission Date: 20070707
  Serious: Yes (Hospitalization)
  Sender: FDA-Public Use
  Company Number: FR-PFIZER INC-2007023583

PATIENT
  Age: 81 Year
  Sex: Female

DRUGS (5)
  1. ZOLOFT [Suspect]
     Dosage: DAILY DOSE:25MG
     Route: 048
  2. TRIMETAZIDINE HYDROCHLORIDE [Suspect]
     Dosage: TEXT:UNKNOWN
     Route: 048
     Dates: start: 20061215, end: 20070204
  3. DIOVAN HCT [Suspect]
     Dosage: TEXT:UNKNOWN
  4. CO-BENELDOPA [Concomitant]
     Route: 048
  5. PIRIBEDIL [Concomitant]
     Route: 048

REACTIONS (6)
  - AGGRESSION [None]
  - CONDITION AGGRAVATED [None]
  - CONVERSION DISORDER [None]
  - DISORIENTATION [None]
  - HALLUCINATION [None]
  - PERSONALITY CHANGE [None]
